FAERS Safety Report 7352252-6 (Version None)
Quarter: 2011Q1

REPORT INFORMATION
  Report Type: 
  Country: None (occurrence: None)
  Receive Date: 20110315
  Receipt Date: 20110310
  Transmission Date: 20110831
  Serious: Yes (Hospitalization)
  Sender: FDA-Public Use
  Company Number: DE-SANOFI-AVENTIS-2010SA073705

PATIENT
  Age: 47 Year
  Sex: Male
  Weight: 77 kg

DRUGS (10)
  1. CLOPIDOGREL [Concomitant]
     Route: 048
     Dates: start: 20101130
  2. RAMIPRIL [Concomitant]
     Route: 048
     Dates: start: 20101201
  3. ALPHA LIPOIC ACID [Concomitant]
     Route: 048
     Dates: start: 20101201
  4. ARAVA [Suspect]
     Indication: RHEUMATOID ARTHRITIS
     Route: 065
  5. ASPIRIN [Concomitant]
     Route: 048
     Dates: start: 20101201
  6. CITALOPRAM HYDROBROMIDE [Concomitant]
     Route: 048
     Dates: start: 20101201
  7. ARAVA [Suspect]
     Dosage: 20 MG EVERY THREE DAYS WITH INTENTION TO WITHDRAWAL
     Route: 065
     Dates: start: 20100101, end: 20101213
  8. PANTOPRAZOLE [Concomitant]
     Route: 048
     Dates: start: 20101201
  9. ARAVA [Suspect]
     Dosage: EVERY THREE DAYS WITH INTENTION TO WITHDRAWAL
     Route: 065
     Dates: end: 20100101
  10. SPIRONOLACTONE [Concomitant]
     Route: 048
     Dates: start: 20101201

REACTIONS (9)
  - ASPARTATE AMINOTRANSFERASE INCREASED [None]
  - NEPHROTIC SYNDROME [None]
  - BLOOD CREATININE INCREASED [None]
  - HEPATIC ENZYME INCREASED [None]
  - BLOOD ALKALINE PHOSPHATASE INCREASED [None]
  - ALANINE AMINOTRANSFERASE INCREASED [None]
  - GAMMA-GLUTAMYLTRANSFERASE INCREASED [None]
  - OFF LABEL USE [None]
  - PROTEIN TOTAL DECREASED [None]
